FAERS Safety Report 5615194-X (Version None)
Quarter: 2008Q1

REPORT INFORMATION
  Report Type: 
  Country: None (occurrence: None)
  Receive Date: 20080206
  Receipt Date: 20080130
  Transmission Date: 20080703
  Serious: Yes (Death, Life-Threatening, Hospitalization, Other)
  Sender: FDA-Public Use
  Company Number: PHBS2007JP07739

PATIENT
  Age: 24 Year
  Sex: Female

DRUGS (7)
  1. TEGRETOL [Suspect]
     Indication: EPILEPSY
     Dosage: 400 MG/DAY
     Route: 048
     Dates: end: 20070507
  2. ZOLOFT [Suspect]
     Indication: DEPRESSION
     Dosage: 50 MG, BID
     Route: 048
     Dates: end: 20070507
  3. ALOSENN [Concomitant]
     Indication: CONSTIPATION
     Dosage: 2 G/DAY
     Route: 048
     Dates: end: 20070507
  4. DAIO-KANZO-TO [Concomitant]
     Indication: CONSTIPATION
     Dosage: 3 DF
     Route: 048
     Dates: end: 20070507
  5. GASMOTIN [Concomitant]
     Indication: CONSTIPATION
     Dosage: 15 MG/DAY
     Route: 048
     Dates: end: 20070507
  6. KAMAG G [Concomitant]
     Indication: CONSTIPATION
     Dosage: 3 G/DAY
     Route: 048
     Dates: end: 20070507
  7. GLYSENNID [Concomitant]
     Indication: CONSTIPATION
     Dosage: 4 DF
     Route: 048
     Dates: end: 20070507

REACTIONS (17)
  - ANTICONVULSANT DRUG LEVEL ABOVE THERAPEUTIC [None]
  - ARRHYTHMIA [None]
  - BLOOD ALKALINE PHOSPHATASE INCREASED [None]
  - CARDIO-RESPIRATORY ARREST [None]
  - COMA [None]
  - CONVERSION DISORDER [None]
  - CONVULSION [None]
  - ELECTROENCEPHALOGRAM ABNORMAL [None]
  - HAEMATEMESIS [None]
  - JAPAN COMA SCALE ABNORMAL [None]
  - LYMPHOCYTE COUNT DECREASED [None]
  - NEUTROPHIL COUNT INCREASED [None]
  - OVERDOSE [None]
  - RESUSCITATION [None]
  - SHOCK [None]
  - VOMITING [None]
  - WHITE BLOOD CELL COUNT INCREASED [None]
